FAERS Safety Report 4323107-6 (Version None)
Quarter: 2004Q1

REPORT INFORMATION
  Report Type: 
  Country: None (occurrence: None)
  Receive Date: 20040323
  Receipt Date: 20040323
  Transmission Date: 20041129
  Serious: No
  Sender: FDA-Public Use
  Company Number: None

PATIENT
  Sex: Female
  Weight: 83 kg

DRUGS (1)
  1. CEFAZOLIN [Suspect]
     Indication: IMPLANT SITE INFECTION
     Dosage: 2 GM IV Q8H
     Route: 042
     Dates: start: 20040226, end: 20040322

REACTIONS (1)
  - NEUTROPENIA [None]
